FAERS Safety Report 6558047-5 (Version None)
Quarter: 2010Q1

REPORT INFORMATION
  Report Type: 
  Country: None (occurrence: None)
  Receive Date: 20100127
  Receipt Date: 20100127
  Transmission Date: 20100710
  Serious: Yes (Hospitalization)
  Sender: FDA-Public Use
  Company Number: None

PATIENT
  Sex: Female
  Weight: 65.9 kg

DRUGS (2)
  1. PROPOXYPHENE NAPSYLATE AND ACETAMINOPHEN [Suspect]
     Indication: PAIN
     Dosage: 1 TABLET EVERY 4 HOURS ORAL
     Route: 048
     Dates: start: 20100116
  2. PROPOXYPHENE NAPSYLATE AND ACETAMINOPHEN [Suspect]
     Indication: PAIN
     Dosage: 1 TABLET EVERY 4 HOURS ORAL
     Route: 048
     Dates: start: 20100117

REACTIONS (2)
  - CEREBROVASCULAR ACCIDENT [None]
  - FALL [None]
